FAERS Safety Report 14838295 (Version 1)
Quarter: 2018Q2

REPORT INFORMATION
  Report Type: Report from Study
  Country: CA (occurrence: CA)
  Receive Date: 20180502
  Receipt Date: 20180502
  Transmission Date: 20180711
  Serious: Yes (Hospitalization, Other)
  Sender: FDA-Public Use
  Company Number: CA-GLAXOSMITHKLINE-CA2018GSK076791

PATIENT
  Age: 0 Year
  Sex: Male
  Weight: 3.18 kg

DRUGS (9)
  1. SUBUTEX [Suspect]
     Active Substance: BUPRENORPHINE HYDROCHLORIDE
     Indication: DRUG DEPENDENCE
     Dosage: 12 MG, QD
     Route: 064
     Dates: start: 20170528, end: 201801
  2. ZOFRAN [Suspect]
     Active Substance: ONDANSETRON HYDROCHLORIDE
     Indication: INSOMNIA
     Dosage: 8 MG, PRN
     Route: 064
     Dates: start: 20170610, end: 20180102
  3. NICOTINE. [Suspect]
     Active Substance: NICOTINE
     Indication: PRODUCT USED FOR UNKNOWN INDICATION
     Dosage: 15 DF, QD (CIGARETTE)
     Route: 064
     Dates: start: 201704, end: 20180107
  4. TRAZODONE [Suspect]
     Active Substance: TRAZODONE HYDROCHLORIDE
     Indication: DEPRESSION
     Dosage: 100 MG, QD
     Route: 064
     Dates: start: 20090906, end: 20170527
  5. ZOFRAN [Suspect]
     Active Substance: ONDANSETRON HYDROCHLORIDE
     Indication: NAUSEA
  6. SUBUTEX [Suspect]
     Active Substance: BUPRENORPHINE HYDROCHLORIDE
     Dosage: 12 MG, QD
     Route: 064
     Dates: start: 201704, end: 20170527
  7. NICOTINE. [Suspect]
     Active Substance: NICOTINE
     Dosage: 15 MG, QD
     Route: 063
     Dates: start: 20180108
  8. SUBUTEX [Suspect]
     Active Substance: BUPRENORPHINE HYDROCHLORIDE
     Dosage: 12 MG, QD
     Route: 063
     Dates: start: 201801, end: 20180214
  9. BUPROPION HYDROCHLORIDE. [Suspect]
     Active Substance: BUPROPION HYDROCHLORIDE
     Indication: DEPRESSION
     Dosage: 300 MG, QD
     Route: 064
     Dates: start: 20090906, end: 20170527

REACTIONS (4)
  - Drug withdrawal syndrome neonatal [Recovered/Resolved]
  - Foetal exposure during pregnancy [Recovered/Resolved]
  - Exposure via breast milk [Recovered/Resolved]
  - Poor feeding infant [Unknown]

NARRATIVE: CASE EVENT DATE: 20180110
